FAERS Safety Report 22199500 (Version 1)
Quarter: 2023Q2

REPORT INFORMATION
  Report Type: Spontaneous
  Country: US (occurrence: US)
  Receive Date: 20230412
  Receipt Date: 20230412
  Transmission Date: 20230722
  Serious: No
  Sender: FDA-Public Use
  Company Number: US-ABBVIE-4723294

PATIENT
  Age: 52 Year
  Sex: Female

DRUGS (4)
  1. RINVOQ [Suspect]
     Active Substance: UPADACITINIB
     Indication: Proctitis ulcerative
     Dosage: THE ONSET OF THE EVENT OF STOOL ODOUR ABNORMAL AND STICKY STOOL WAS IN NOV 2022.
     Route: 048
     Dates: start: 20221129, end: 202301
  2. RINVOQ [Suspect]
     Active Substance: UPADACITINIB
     Indication: Proctitis ulcerative
     Route: 048
     Dates: start: 202301
  3. CLARITIN [Concomitant]
     Active Substance: LORATADINE
     Indication: Product used for unknown indication
  4. VITAMIN E [Concomitant]
     Active Substance: .ALPHA.-TOCOPHEROL
     Indication: Product used for unknown indication

REACTIONS (7)
  - Acne [Not Recovered/Not Resolved]
  - Bowel movement irregularity [Unknown]
  - Flatulence [Unknown]
  - Sleep disorder [Unknown]
  - Abnormal faeces [Unknown]
  - Off label use [Not Recovered/Not Resolved]
  - Abnormal faeces [Not Recovered/Not Resolved]

NARRATIVE: CASE EVENT DATE: 20230201
